FAERS Safety Report 4506052-2 (Version None)
Quarter: 2004Q4

REPORT INFORMATION
  Report Type: 
  Country: None (occurrence: None)
  Receive Date: 20041025
  Receipt Date: 20031028
  Transmission Date: 20050328
  Serious: Yes (Other)
  Sender: FDA-Public Use
  Company Number: US-JNJFOC-20030802652

PATIENT
  Age: 14 Year
  Sex: Female

DRUGS (8)
  1. REMICADE [Suspect]
     Indication: JUVENILE ARTHRITIS
     Dosage: 1 IN 1 DAY INTRAVENOUS
     Route: 042
  2. METHOTREXATE [Concomitant]
  3. PLAQUENIL [Concomitant]
  4. NAPROSYN [Concomitant]
  5. TYLENOL [Concomitant]
  6. BENADRYL [Concomitant]
  7. BENADRYL [Concomitant]
  8. PREDNISONE [Concomitant]

REACTIONS (8)
  - ABDOMINAL PAIN [None]
  - ANAEMIA OF CHRONIC DISEASE [None]
  - ARTHRALGIA [None]
  - BACK PAIN [None]
  - INFUSION RELATED REACTION [None]
  - NAUSEA [None]
  - SERUM SICKNESS [None]
  - VOMITING [None]
